FAERS Safety Report 9789975 (Version 1)
Quarter: 2013Q4

REPORT INFORMATION
  Report Type: Spontaneous
  Country: US (occurrence: None)
  Receive Date: 20131230
  Receipt Date: 20131230
  Transmission Date: 20140711
  Serious: Yes (Life-Threatening)
  Sender: FDA-Public Use
  Company Number: None

PATIENT
  Age: 37 Year
  Sex: Female
  Weight: 113.4 kg

DRUGS (1)
  1. QSYMIA [Suspect]
     Indication: WEIGHT DECREASED
     Dosage: 1 PILL
     Route: 048

REACTIONS (9)
  - Psychiatric symptom [None]
  - Binge eating [None]
  - Feeling of despair [None]
  - Depression [None]
  - Feelings of worthlessness [None]
  - Suicidal ideation [None]
  - Paranoia [None]
  - Social avoidant behaviour [None]
  - Intentional self-injury [None]
